FAERS Safety Report 9198574 (Version 1)
Quarter: 2013Q1

REPORT INFORMATION
  Report Type: Spontaneous
  Country: US (occurrence: US)
  Receive Date: 20130329
  Receipt Date: 20130329
  Transmission Date: 20140127
  Serious: Yes (Disabling)
  Sender: FDA-Public Use
  Company Number: US-JNJFOC-20130312115

PATIENT
  Sex: Male

DRUGS (10)
  1. ZYTIGA [Suspect]
     Indication: PROSTATE CANCER
     Dosage: 1000 MG (250 MG X 4)
     Route: 048
     Dates: start: 20121015, end: 20121212
  2. MEGESTROL [Concomitant]
     Route: 065
  3. OXYCONTIN [Concomitant]
     Route: 065
  4. VITAMIN D [Concomitant]
     Dosage: 50,000 WEEKLY
     Route: 065
  5. ABILIFY [Concomitant]
     Route: 065
  6. XANAX [Concomitant]
     Route: 065
  7. LITHIUM CARBONATE [Concomitant]
     Route: 065
  8. VITAMIN B12 [Concomitant]
     Route: 065
  9. PREDNISONE [Concomitant]
     Route: 065
  10. ZOMETA [Concomitant]
     Route: 042

REACTIONS (3)
  - Prostatic specific antigen increased [Unknown]
  - Muscular weakness [Unknown]
  - Abasia [Unknown]
